FAERS Safety Report 4910080-2 (Version None)
Quarter: 2006Q1

REPORT INFORMATION
  Report Type: 
  Country: None (occurrence: None)
  Receive Date: 20060209
  Receipt Date: 20060125
  Transmission Date: 20060701
  Serious: Yes (Hospitalization)
  Sender: FDA-Public Use
  Company Number: 2006-00251

PATIENT
  Age: 66 Year
  Sex: Male

DRUGS (1)
  1. FERRLECIT [Suspect]
     Indication: IRON DEFICIENCY
     Dosage: 100 MG IN NS, QD X 2; INTRAVENOUS
     Route: 042
     Dates: start: 20060119, end: 20060120

REACTIONS (7)
  - BACK PAIN [None]
  - HYPOXIA [None]
  - NAUSEA [None]
  - RESPIRATORY DISTRESS [None]
  - VOMITING [None]
  - WHEEZING [None]
  - WOUND DEHISCENCE [None]
